FAERS Safety Report 10037832 (Version 1)
Quarter: 2014Q1

REPORT INFORMATION
  Report Type: Spontaneous
  Country: US (occurrence: None)
  Receive Date: 20140306
  Receipt Date: 20140306
  Transmission Date: 20141002
  Serious: Yes (Other)
  Sender: FDA-Public Use
  Company Number: 163-21880-13062211

PATIENT
  Age: 84 Year
  Sex: Male
  Weight: 80.2 kg

DRUGS (20)
  1. REVLIMID (LENALIDOMIDE) (5 MILLIGRAM, CAPSULES) [Suspect]
     Indication: MYELODYSPLASTIC SYNDROME
     Route: 048
     Dates: start: 20130531
  2. CALCIUM CARBONATE (CALCIUM CARBONATE) (CALCIUM CARBONATE) [Concomitant]
  3. ASPIRIN (ACETYLSALICYLIC ACID) [Concomitant]
  4. CALCIUM PHOSPHATE VITAMIN (CALCIUM PHOSPHATE) [Concomitant]
  5. CHONDROITIN SULFATE A SODIUM (CHONDROITIN) [Concomitant]
  6. COENZYME Q10 (UBIDECARENONE) [Concomitant]
  7. CYANOCOBALAMIN VITAMIN B (CYANOCOBALAMIN) [Concomitant]
  8. FLAXSEED OIL (LINSEED OIL) [Concomitant]
  9. FLUOXETINE (FLUOXETINE) [Concomitant]
  10. GLUCOSAMINE SLFATE 2KCL (GLUCOSAMINE SULFATE) [Concomitant]
  11. METFORMIN (METFORMIN) [Concomitant]
  12. METHYLSULFONYLMETHANE (METHYLSULFONYLMETHANE) [Concomitant]
  13. METOPROLOL TARTRATE (METOPROLOL TARTRATE) [Concomitant]
  14. MULTIVITAMINS (MULTIVITAMINS) [Concomitant]
  15. OMEGA 3 FATTY ACIDS VITAMIN 3 (FISH OIL) [Concomitant]
  16. OMEPRAZOLE (OMEPRAZOLE) [Concomitant]
  17. PRAVASTATIN (PRAVASTATIN) [Concomitant]
  18. ZINC ACETATE (ZINC ACETATE) [Concomitant]
  19. DARBEPOETIN (DARBEPOETIN ALFA) [Concomitant]
  20. FUROSEMIDE (FUROSEMIDE) [Concomitant]

REACTIONS (5)
  - Swelling face [None]
  - Lip swelling [None]
  - Urticaria [None]
  - Oedema peripheral [None]
  - Pruritus [None]
